FAERS Safety Report 6634245-7 (Version None)
Quarter: 2010Q1

REPORT INFORMATION
  Report Type: 
  Country: None (occurrence: None)
  Receive Date: 20100315
  Receipt Date: 20100308
  Transmission Date: 20100710
  Serious: Yes (Life-Threatening, Other)
  Sender: FDA-Public Use
  Company Number: CA-ASTRAZENECA-2010SE10072

PATIENT
  Age: 17 Year
  Sex: Male

DRUGS (4)
  1. BUPIVACAINE HCL [Suspect]
     Indication: NERVE BLOCK
     Route: 053
  2. BUPIVACAINE HCL [Suspect]
     Indication: SPINAL ANAESTHESIA
     Route: 053
  3. BUPIVACAINE HCL [Suspect]
     Route: 039
  4. BUPIVACAINE HCL [Suspect]
     Route: 039

REACTIONS (2)
  - CONVULSION [None]
  - VENTRICULAR FIBRILLATION [None]
